FAERS Safety Report 12626043 (Version 2)
Quarter: 2016Q3

REPORT INFORMATION
  Report Type: Spontaneous
  Country: IL (occurrence: IL)
  Receive Date: 20160805
  Receipt Date: 20160905
  Transmission Date: 20161109
  Serious: Yes (Death)
  Sender: FDA-Public Use
  Company Number: IL-ACTELION-A-CH2016-138349

PATIENT
  Age: 22 Year
  Sex: Male

DRUGS (2)
  1. ZAVESCA [Suspect]
     Active Substance: MIGLUSTAT
     Dosage: 400 MG, QD
     Route: 048
     Dates: end: 2016
  2. ZAVESCA [Suspect]
     Active Substance: MIGLUSTAT
     Indication: NIEMANN-PICK DISEASE
     Dosage: 200 MG, TID
     Route: 048
     Dates: start: 201604

REACTIONS (5)
  - Sleep disorder [Recovered/Resolved]
  - Dyskinesia [Recovering/Resolving]
  - Apathy [Recovering/Resolving]
  - Cardiac arrest [Fatal]
  - Tremor [Recovered/Resolved]

NARRATIVE: CASE EVENT DATE: 2016
